FAERS Safety Report 25585704 (Version 1)
Quarter: 2025Q3

REPORT INFORMATION
  Report Type: Spontaneous
  Country: CN (occurrence: CN)
  Receive Date: 20250721
  Receipt Date: 20250721
  Transmission Date: 20251021
  Serious: Yes (Life-Threatening, Other)
  Sender: PFIZER
  Company Number: CN-PFIZER INC-PV202500085670

PATIENT
  Age: 61 Year
  Sex: Female
  Weight: 95 kg

DRUGS (12)
  1. VORICONAZOLE [Suspect]
     Active Substance: VORICONAZOLE
     Indication: Aspergillus infection
     Dosage: 0.2 G, 2X/DAY (FIRST DOSE DOUBLING)
     Route: 041
     Dates: start: 20250623, end: 20250716
  2. AMPHOTERICIN B [Suspect]
     Active Substance: AMPHOTERICIN B
     Indication: Aspergillus infection
     Dosage: 2 MG, 1X/DAY
     Dates: start: 20250627, end: 20250628
  3. AMPHOTERICIN B [Suspect]
     Active Substance: AMPHOTERICIN B
     Dosage: 2 MG, 1X/DAY
     Route: 037
     Dates: start: 20250629, end: 20250630
  4. AMPHOTERICIN B [Suspect]
     Active Substance: AMPHOTERICIN B
     Dosage: 30 MG, 1X/DAY (BEGAN AT 5 MG, RAMP UP BY 5 MG DAILY UNTIL 04JUL2025, MAINTAINED AT 30 MG)
     Route: 041
     Dates: start: 20250630, end: 20250716
  5. METOPROLOL SUCCINATE [Suspect]
     Active Substance: METOPROLOL SUCCINATE
     Indication: Hypertension
     Dosage: 47.5 MG, 1X/DAY
     Route: 048
     Dates: start: 20250620, end: 20250712
  6. NIMESULIDE [Suspect]
     Active Substance: NIMESULIDE
  7. SODIUM CHLORIDE [Concomitant]
     Active Substance: SODIUM CHLORIDE
     Indication: Vehicle solution use
     Dosage: 5 ML, 1X/DAY
     Dates: start: 20250627, end: 20250628
  8. SODIUM CHLORIDE [Concomitant]
     Active Substance: SODIUM CHLORIDE
     Dosage: 5 ML, 1X/DAY
     Route: 037
     Dates: start: 20250629, end: 20250630
  9. SODIUM CHLORIDE [Concomitant]
     Active Substance: SODIUM CHLORIDE
     Dosage: 100 ML, 2X/DAY
     Route: 041
     Dates: start: 20250623, end: 20250716
  10. MANNITOL [Concomitant]
     Active Substance: MANNITOL
     Indication: Hydrocephalus
     Dosage: 200 ML, 1X/DAY
     Route: 041
     Dates: start: 20250618, end: 20250708
  11. AMLODIPINE BESYLATE [Concomitant]
     Active Substance: AMLODIPINE BESYLATE
     Indication: Hypertension
     Dosage: 5 MG, 1X/DAY
     Route: 048
     Dates: start: 20250620, end: 20250716
  12. DEXTROSE [Concomitant]
     Active Substance: DEXTROSE MONOHYDRATE
     Indication: Vehicle solution use
     Dosage: 500 ML, 1X/DAY
     Route: 041
     Dates: start: 20250630, end: 20250716

REACTIONS (2)
  - Hypokalaemia [Recovering/Resolving]
  - Off label use [Unknown]

NARRATIVE: CASE EVENT DATE: 20250623
